FAERS Safety Report 20115740 (Version 1)
Quarter: 2021Q4

REPORT INFORMATION
  Report Type: Spontaneous
  Country: US (occurrence: US)
  Receive Date: 20211126
  Receipt Date: 20211126
  Transmission Date: 20220303
  Serious: Yes (Death, Other)
  Sender: FDA-Public Use
  Company Number: US-BIOVITRUM-2021US11230

PATIENT
  Sex: Female

DRUGS (4)
  1. SYNAGIS [Suspect]
     Active Substance: PALIVIZUMAB
     Indication: Antiviral prophylaxis
     Dosage: 50MG/0.5ML?100MG/ML
     Route: 030
     Dates: start: 202110
  2. SYNAGIS [Suspect]
     Active Substance: PALIVIZUMAB
     Indication: Chronic respiratory disease
  3. SYNAGIS [Suspect]
     Active Substance: PALIVIZUMAB
     Indication: Bronchial disorder
  4. SYNAGIS [Suspect]
     Active Substance: PALIVIZUMAB
     Indication: Congenital diaphragmatic anomaly

REACTIONS (1)
  - Death [Fatal]
